FAERS Safety Report 14203418 (Version 4)
Quarter: 2022Q1

REPORT INFORMATION
  Report Type: Spontaneous
  Country: US (occurrence: None)
  Receive Date: 20171120
  Receipt Date: 20220318
  Transmission Date: 20220423
  Serious: Yes (Hospitalization, Other)
  Sender: FDA-Public Use
  Company Number: US-ROCHE-2023814

PATIENT
  Sex: Female
  Weight: 57.658 kg

DRUGS (18)
  1. HERCEPTIN [Suspect]
     Active Substance: TRASTUZUMAB
     Indication: HER2 positive breast cancer
     Route: 065
     Dates: start: 200410, end: 201305
  2. HERCEPTIN [Suspect]
     Active Substance: TRASTUZUMAB
     Indication: Breast cancer metastatic
     Route: 042
     Dates: start: 200410, end: 201302
  3. KADCYLA [Suspect]
     Active Substance: ADO-TRASTUZUMAB EMTANSINE
     Indication: HER2 positive breast cancer
     Route: 042
     Dates: start: 201305
  4. KADCYLA [Suspect]
     Active Substance: ADO-TRASTUZUMAB EMTANSINE
     Indication: Adrenal gland cancer
  5. XELODA [Suspect]
     Active Substance: CAPECITABINE
     Indication: Breast cancer metastatic
     Route: 048
     Dates: start: 2012, end: 201305
  6. XELODA [Suspect]
     Active Substance: CAPECITABINE
     Route: 065
     Dates: start: 201301, end: 201302
  7. XELODA [Suspect]
     Active Substance: CAPECITABINE
     Route: 048
     Dates: start: 201303, end: 201305
  8. ZOMETA [Suspect]
     Active Substance: ZOLEDRONIC ACID
     Indication: HER2 positive breast cancer
     Dosage: GRADUALLY REDUCED TO ONCE EVERY 6 MONTHS, DECREASED FREQUENCY OVER TIME TO GET TO THAT DOSE
     Route: 042
     Dates: start: 200410, end: 2017
  9. ZOMETA [Suspect]
     Active Substance: ZOLEDRONIC ACID
     Indication: Metastases to bone
     Dosage: DECREASED FREQUENCY OVER TIME TO GET TO THAT DOSE
     Route: 042
     Dates: start: 2004, end: 2016
  10. ZOMETA [Suspect]
     Active Substance: ZOLEDRONIC ACID
     Route: 042
     Dates: start: 200405, end: 201606
  11. TYKERB [Concomitant]
     Active Substance: LAPATINIB DITOSYLATE
     Indication: Breast cancer metastatic
     Route: 048
     Dates: start: 2012, end: 201305
  12. TYKERB [Concomitant]
     Active Substance: LAPATINIB DITOSYLATE
     Route: 048
     Dates: start: 201301, end: 201302
  13. TAXOL [Concomitant]
     Active Substance: PACLITAXEL
     Indication: HER2 positive breast cancer
     Route: 042
     Dates: start: 200410, end: 200505
  14. CARBOPLATIN [Concomitant]
     Active Substance: CARBOPLATIN
     Indication: HER2 positive breast cancer
     Route: 042
     Dates: start: 200410, end: 200505
  15. SELENIUM [Concomitant]
     Active Substance: SELENIUM
  16. CALCIUM [Concomitant]
     Active Substance: CALCIUM
  17. CHLORHEXIDINE [Concomitant]
     Active Substance: CHLORHEXIDINE
  18. CHLORCON [Concomitant]

REACTIONS (10)
  - Metastases to adrenals [Recovered/Resolved]
  - Platelet count decreased [Unknown]
  - Blood bilirubin abnormal [Not Recovered/Not Resolved]
  - Epistaxis [Recovered/Resolved]
  - Foot fracture [Recovered/Resolved]
  - Diarrhoea [Recovered/Resolved]
  - Osteonecrosis of jaw [Unknown]
  - Blood potassium decreased [Recovered/Resolved]
  - Pancreatic cyst [Unknown]
  - Pneumonia [Unknown]

NARRATIVE: CASE EVENT DATE: 20120101
